FAERS Safety Report 13796132 (Version 1)
Quarter: 2017Q3

REPORT INFORMATION
  Report Type: Report from Study
  Country: US (occurrence: BR)
  Receive Date: 20170726
  Receipt Date: 20170726
  Transmission Date: 20171127
  Serious: Yes (Life-Threatening, Other)
  Sender: FDA-Public Use
  Company Number: US-SUNOVION-2017SUN003238

PATIENT
  Sex: Female
  Weight: 64 kg

DRUGS (7)
  1. OXYGEN. [Concomitant]
     Active Substance: OXYGEN
  2. SYMBICORT [Concomitant]
     Active Substance: BUDESONIDE\FORMOTEROL FUMARATE DIHYDRATE
  3. GLYCOPYRROLATE. [Suspect]
     Active Substance: GLYCOPYRROLATE
     Indication: ASTHMA
     Dosage: UNK, BID
     Route: 055
  4. ALENIA [Concomitant]
     Active Substance: BUDESONIDE\FORMOTEROL FUMARATE
  5. CYCLOBENZAPRINE HYDROCHLORIDE. [Concomitant]
     Active Substance: CYCLOBENZAPRINE HYDROCHLORIDE
  6. XOLAIR [Suspect]
     Active Substance: OMALIZUMAB
     Indication: ASTHMA
     Dosage: 300 MG, BIW
     Route: 058
     Dates: start: 2010
  7. MIFLASONA [Concomitant]
     Active Substance: BECLOMETHASONE DIPROPIONATE

REACTIONS (13)
  - Asthmatic crisis [Not Recovered/Not Resolved]
  - Feeling abnormal [Unknown]
  - Hernia [Unknown]
  - Malaise [Unknown]
  - Depression [Unknown]
  - Neuropathy peripheral [Unknown]
  - Calculus bladder [Unknown]
  - Visual impairment [Unknown]
  - Weight increased [Recovering/Resolving]
  - Memory impairment [Unknown]
  - Spinal osteoarthritis [Not Recovered/Not Resolved]
  - Intervertebral disc protrusion [Not Recovered/Not Resolved]
  - Product use in unapproved indication [Unknown]
